FAERS Safety Report 4717651-7 (Version None)
Quarter: 2005Q3

REPORT INFORMATION
  Report Type: 
  Country: None (occurrence: None)
  Receive Date: 20050713
  Receipt Date: 20050330
  Transmission Date: 20060218
  Serious: Yes (Hospitalization)
  Sender: FDA-Public Use
  Company Number: 400330

PATIENT
  Age: 45 Year
  Sex: Female
  Weight: 63.5 kg

DRUGS (12)
  1. FUZEON [Suspect]
     Indication: HIV INFECTION
     Dosage: 90 MG 2 PER DAY SUBCUTANEOUS
     Route: 058
     Dates: start: 20050306
  2. DIFLUCAN (DIFLUCAN) [Concomitant]
  3. TIAZAC [Concomitant]
  4. HYDROCHLOROTHIAZIDE [Concomitant]
  5. NORVIR [Concomitant]
  6. REYATAZ [Concomitant]
  7. EMTRIVA [Concomitant]
  8. VIREAD [Concomitant]
  9. AZT [Concomitant]
  10. HUMULIN (BIPHASIC ISOPHANE HUMULIN) [Concomitant]
  11. HUMALOG [Concomitant]
  12. LANTUS [Concomitant]

REACTIONS (8)
  - ABDOMINAL DISCOMFORT [None]
  - BLOOD GLUCOSE INCREASED [None]
  - CONTUSION [None]
  - ECZEMA [None]
  - HYPERGLYCAEMIA [None]
  - INJECTION SITE REACTION [None]
  - PRURITUS [None]
  - SKIN DISORDER [None]
